FAERS Safety Report 14670367 (Version 7)
Quarter: 2019Q2

REPORT INFORMATION
  Report Type: Report from Study
  Country: US (occurrence: US)
  Receive Date: 20180322
  Receipt Date: 20190405
  Transmission Date: 20190711
  Serious: Yes (Other)
  Sender: FDA-Public Use
  Company Number: US-ALEXION PHARMACEUTICALS INC.-A201802966

PATIENT
  Sex: Female

DRUGS (10)
  1. TELMISARTAN. [Concomitant]
     Active Substance: TELMISARTAN
     Indication: PRODUCT USED FOR UNKNOWN INDICATION
     Route: 065
  2. SOLIRIS [Suspect]
     Active Substance: ECULIZUMAB
     Indication: ATYPICAL HAEMOLYTIC URAEMIC SYNDROME
     Dosage: UNK
     Route: 065
  3. SOLIRIS [Suspect]
     Active Substance: ECULIZUMAB
     Dosage: 1200 MG, Q2W
     Route: 042
     Dates: start: 20170627
  4. EPHEDRINE. [Concomitant]
     Active Substance: EPHEDRINE
     Indication: PRODUCT USED FOR UNKNOWN INDICATION
     Route: 065
  5. ERYTHROMYCIN. [Concomitant]
     Active Substance: ERYTHROMYCIN
     Indication: PRODUCT USED FOR UNKNOWN INDICATION
     Dosage: 500 MG, BID
     Route: 065
     Dates: start: 20170626
  6. SOLIRIS [Suspect]
     Active Substance: ECULIZUMAB
     Dosage: 1200 MG, Q2W
     Route: 065
  7. DIALYSATE [Concomitant]
     Indication: PERITONEAL DIALYSIS
     Dosage: 3 CYCLES, 1200 ML, TIW
     Route: 065
  8. NORVASC [Concomitant]
     Active Substance: AMLODIPINE BESYLATE
     Indication: PRODUCT USED FOR UNKNOWN INDICATION
     Route: 065
  9. SOLIRIS [Suspect]
     Active Substance: ECULIZUMAB
     Dosage: UNK
     Route: 042
  10. SOLIRIS [Suspect]
     Active Substance: ECULIZUMAB
     Dosage: UNK, Q2W
     Route: 042
     Dates: start: 20170627

REACTIONS (14)
  - Blood creatinine increased [Unknown]
  - Muscle fatigue [Unknown]
  - Proteinuria [Unknown]
  - Pruritus [Unknown]
  - Hyperhidrosis [Unknown]
  - Feeling hot [Unknown]
  - Blood urea increased [Unknown]
  - Blood potassium decreased [Unknown]
  - Blood pressure increased [Not Recovered/Not Resolved]
  - Sleep disorder [Unknown]
  - Sluggishness [Unknown]
  - Peritoneal dialysis [Recovered/Resolved]
  - Device issue [Unknown]
  - Headache [Unknown]

NARRATIVE: CASE EVENT DATE: 20180306
